FAERS Safety Report 9267319 (Version 2)
Quarter: 2013Q2

REPORT INFORMATION
  Report Type: Spontaneous
  Country: US (occurrence: US)
  Receive Date: 20130502
  Receipt Date: 20130517
  Transmission Date: 20140414
  Serious: Yes (Hospitalization)
  Sender: FDA-Public Use
  Company Number: US-JNJFOC-20130415856

PATIENT
  Age: 28 Year
  Sex: Male
  Weight: 77.11 kg

DRUGS (4)
  1. NUCYNTA IR [Suspect]
     Indication: PAIN
     Dosage: THRICE A DAY
     Route: 048
     Dates: start: 20130422, end: 20130424
  2. CYMBALTA [Suspect]
     Indication: PAIN
     Dosage: 60 MG + 30 MG, ONCE DAILY
     Route: 048
  3. CYMBALTA [Suspect]
     Indication: ANXIETY
     Dosage: 60 MG + 30 MG, ONCE DAILY
     Route: 048
  4. CYMBALTA [Suspect]
     Indication: NEUROPATHY PERIPHERAL
     Dosage: 60 MG + 30 MG, ONCE DAILY
     Route: 048

REACTIONS (2)
  - Serotonin syndrome [Recovering/Resolving]
  - Vertigo [Recovering/Resolving]
